FAERS Safety Report 10020699 (Version 2)
Quarter: 2014Q1

REPORT INFORMATION
  Report Type: Spontaneous
  Country: CA (occurrence: CA)
  Receive Date: 20140319
  Receipt Date: 20140319
  Transmission Date: 20141002
  Serious: Yes (Other)
  Sender: FDA-Public Use
  Company Number: CA-AMGEN-CANSP2013082347

PATIENT
  Age: 79 Year
  Sex: Female

DRUGS (1)
  1. PROLIA [Suspect]
     Indication: OSTEOPOROSIS POSTMENOPAUSAL
     Dosage: 60 MG, Q6MO
     Route: 058
     Dates: start: 20130613

REACTIONS (9)
  - Peripheral paralysis [Unknown]
  - Diabetes mellitus [Unknown]
  - Hypoaesthesia [Unknown]
  - Musculoskeletal stiffness [Unknown]
  - Grip strength decreased [Unknown]
  - Finger deformity [Unknown]
  - Gait disturbance [Unknown]
  - Oedema [Unknown]
  - Back pain [Unknown]
